FAERS Safety Report 14060879 (Version 3)
Quarter: 2018Q1

REPORT INFORMATION
  Report Type: Spontaneous
  Country: AU (occurrence: AU)
  Receive Date: 20171009
  Receipt Date: 20180308
  Transmission Date: 20180508
  Serious: Yes (Death, Other)
  Sender: FDA-Public Use
  Company Number: PHHY2017AU147717

PATIENT
  Sex: Female

DRUGS (11)
  1. IDARUBICIN [Suspect]
     Active Substance: IDARUBICIN
     Indication: MARROW HYPERPLASIA
     Dosage: 12 MG/M2, QD (DAY 1 TO 3)
     Route: 042
     Dates: start: 20110409
  2. CYTARABINE. [Suspect]
     Active Substance: CYTARABINE
     Indication: MARROW HYPERPLASIA
     Dosage: 100 MG/M2, QD (DAY 1 TO 7)
     Route: 042
     Dates: start: 20110409
  3. IDARUBICIN [Suspect]
     Active Substance: IDARUBICIN
     Indication: MYELOFIBROSIS
  4. AMBI (GUAIFENESIN) [Suspect]
     Active Substance: GUAIFENESIN
     Dosage: UNK
     Route: 065
     Dates: start: 20110602
  5. AMBI (GUAIFENESIN) [Suspect]
     Active Substance: GUAIFENESIN
     Indication: PRODUCT USED FOR UNKNOWN INDICATION
     Dosage: UNK
     Route: 065
     Dates: start: 20110409
  6. AMBI (GUAIFENESIN) [Suspect]
     Active Substance: GUAIFENESIN
     Dosage: UNK
     Route: 065
     Dates: start: 20110715
  7. AZACITIDINE. [Suspect]
     Active Substance: AZACITIDINE
     Indication: MARROW HYPERPLASIA
     Dosage: UNK
     Route: 065
     Dates: start: 20110602
  8. AZACITIDINE. [Suspect]
     Active Substance: AZACITIDINE
     Indication: MYELOFIBROSIS
     Dosage: UNK
     Route: 065
     Dates: start: 20110715
  9. CYTARABINE. [Suspect]
     Active Substance: CYTARABINE
     Indication: MYELOFIBROSIS
  10. EVEROLIMUS. [Suspect]
     Active Substance: EVEROLIMUS
     Indication: MARROW HYPERPLASIA
     Dosage: UNK
     Route: 065
     Dates: start: 20110602
  11. EVEROLIMUS. [Suspect]
     Active Substance: EVEROLIMUS
     Indication: MYELOFIBROSIS
     Dosage: UNK
     Route: 065
     Dates: start: 20110715

REACTIONS (3)
  - Product use in unapproved indication [Unknown]
  - Acute myeloid leukaemia recurrent [Not Recovered/Not Resolved]
  - Death [Fatal]
